FAERS Safety Report 19108838 (Version 3)
Quarter: 2021Q2

REPORT INFORMATION
  Report Type: Spontaneous
  Country: US (occurrence: US)
  Receive Date: 20210408
  Receipt Date: 20210423
  Transmission Date: 20210717
  Serious: Yes (Hospitalization, Disabling, Other)
  Sender: FDA-Public Use
  Company Number: US-009507513-2104USA001194

PATIENT
  Age: 76 Year
  Sex: Female
  Weight: 51.25 kg

DRUGS (15)
  1. COVID?19 VACCINE NOS. [Suspect]
     Active Substance: COVID-19 VACCINE NOS
     Dosage: UNK
     Dates: start: 20210203
  2. PIOGLITAZONE HYDROCHLORIDE. [Concomitant]
     Active Substance: PIOGLITAZONE HYDROCHLORIDE
     Dosage: UNK
  3. FERROUS SULFATE. [Concomitant]
     Active Substance: FERROUS SULFATE
     Dosage: 1 TABLET, ORALLY, ONCE A DAY
     Route: 048
  4. ALPRAZOLAM. [Concomitant]
     Active Substance: ALPRAZOLAM
     Dosage: 1 TABLET, ORALLY, 30 MINUTES PRIOR TO STUDY
     Route: 048
  5. NORVASC [Concomitant]
     Active Substance: AMLODIPINE BESYLATE
     Dosage: 1 TABLET ORALLY, ONCE A DAY
     Route: 048
  6. GABAPENTIN. [Concomitant]
     Active Substance: GABAPENTIN
     Indication: NEUROPATHY PERIPHERAL
     Dosage: 1 CAPSULE, ORALLY, ONCE A DAY AT BEDTIME
     Route: 048
     Dates: start: 2020
  7. MIRTAZAPINE. [Concomitant]
     Active Substance: MIRTAZAPINE
     Dosage: 1 TABLET ORALLY, QHS
  8. COVID?19 VACCINE NOS. [Suspect]
     Active Substance: COVID-19 VACCINE NOS
     Indication: PROPHYLAXIS
     Dosage: UNK
  9. METFORMIN HYDROCHLORIDE. [Concomitant]
     Active Substance: METFORMIN HYDROCHLORIDE
     Dosage: 1 TABLET WITH A MEAL, ORALLY, ONCE A DAY
  10. KEYTRUDA [Suspect]
     Active Substance: PEMBROLIZUMAB
     Indication: PAPILLARY SEROUS ENDOMETRIAL CARCINOMA
     Dosage: 200 MILLIGRAM, EVERY 3 WEEKS, 2 CYCLES
     Route: 042
     Dates: start: 20210104, end: 20210125
  11. PRINIVIL [Concomitant]
     Active Substance: LISINOPRIL
     Dosage: 1 TABLET, ORALLY, ONCE A DAY
     Route: 048
  12. ERGOCALCIFEROL. [Concomitant]
     Active Substance: ERGOCALCIFEROL
     Dosage: 1 CAPSULE, ORALLY
     Route: 048
  13. ANASTROZOLE. [Concomitant]
     Active Substance: ANASTROZOLE
     Dosage: 1 TABLET ORALLY, ONCE A DAY
     Route: 048
  14. FAMOTIDINE. [Concomitant]
     Active Substance: FAMOTIDINE
     Dosage: 1 TABLET AT BEDTIME, ORALLY, ONCE A DAY
     Route: 048
  15. MAGNESIUM (UNSPECIFIED) [Suspect]
     Active Substance: MAGNESIUM
     Dosage: UNK
     Route: 042
     Dates: start: 202103, end: 2021

REACTIONS (34)
  - Early satiety [Unknown]
  - Emphysema [Unknown]
  - Diarrhoea [Recovered/Resolved]
  - Swelling face [Recovering/Resolving]
  - Ageusia [Unknown]
  - Protein total decreased [Unknown]
  - Oropharyngeal pain [Unknown]
  - Renal atrophy [Unknown]
  - Immune-mediated thyroiditis [Unknown]
  - Weight decreased [Recovering/Resolving]
  - Pharyngeal swelling [Unknown]
  - Chronic kidney disease [Unknown]
  - Renal impairment [Recovering/Resolving]
  - Asthenia [Recovering/Resolving]
  - Limb discomfort [Unknown]
  - Swollen tongue [Unknown]
  - Dehydration [Unknown]
  - Hypomagnesaemia [Unknown]
  - Dry mouth [Unknown]
  - Dyspnoea [Unknown]
  - Dysphagia [Recovering/Resolving]
  - Musculoskeletal stiffness [Recovering/Resolving]
  - Fatigue [Recovering/Resolving]
  - Sinus tachycardia [Unknown]
  - Blood glucose increased [Unknown]
  - Dysphonia [Recovering/Resolving]
  - Lip swelling [Recovering/Resolving]
  - Oxygen saturation abnormal [Unknown]
  - Paraesthesia oral [Unknown]
  - Aspartate aminotransferase increased [Unknown]
  - Palpitations [Unknown]
  - Heart rate increased [Unknown]
  - Myalgia [Unknown]
  - Decreased appetite [Recovering/Resolving]

NARRATIVE: CASE EVENT DATE: 2021
